FAERS Safety Report 9964306 (Version 2)
Quarter: 2014Q2

REPORT INFORMATION
  Report Type: Spontaneous
  Country: JP (occurrence: JP)
  Receive Date: 20140305
  Receipt Date: 20140506
  Transmission Date: 20141212
  Serious: Yes (Disabling)
  Sender: FDA-Public Use
  Company Number: JP-ELI_LILLY_AND_COMPANY-JP201402008254

PATIENT
  Age: 32 Year
  Sex: Male

DRUGS (7)
  1. ZYPREXA [Suspect]
     Indication: SCHIZOPHRENIA
     Dosage: UNK
     Route: 048
     Dates: start: 20120218
  2. ZYPREXA [Suspect]
     Dosage: UNK
     Route: 048
     Dates: end: 20130603
  3. ZYPREXA [Suspect]
     Dosage: UNK
     Route: 048
     Dates: start: 20130604, end: 20140110
  4. ZYPREXA [Suspect]
     Dosage: UNK
     Route: 048
     Dates: start: 20140111
  5. ZYPREXA [Suspect]
     Dosage: UNK
     Route: 048
  6. ANAFRANIL [Concomitant]
     Dosage: 10 MG, UNK
     Route: 048
  7. WYPAX [Concomitant]
     Dosage: 0.5 MG, QD
     Route: 048

REACTIONS (2)
  - Autism spectrum disorder [Not Recovered/Not Resolved]
  - Gaze palsy [Unknown]
